FAERS Safety Report 8869422 (Version 1)
Quarter: 2012Q4

REPORT INFORMATION
  Report Type: Spontaneous
  Country: RS (occurrence: None)
  Receive Date: 20121024
  Receipt Date: 20121024
  Transmission Date: 20130627
  Serious: Yes (Other)
  Sender: FDA-Public Use
  Company Number: FK201203138

PATIENT
  Age: 2 Month
  Sex: Male

DRUGS (1)
  1. ETOPOSIDE [Suspect]
     Indication: HISTIOCYTOSIS HAEMATOPHAGIC

REACTIONS (6)
  - Left ventricular hypertrophy [None]
  - Febrile neutropenia [None]
  - Diarrhoea [None]
  - Cardiac septal hypertrophy [None]
  - Cardiac murmur [None]
  - Mitral valve incompetence [None]
